FAERS Safety Report 10406921 (Version 1)
Quarter: 2014Q3

REPORT INFORMATION
  Report Type: Spontaneous
  Country: US (occurrence: US)
  Receive Date: 20140825
  Receipt Date: 20140825
  Transmission Date: 20150326
  Serious: Yes (Hospitalization)
  Sender: FDA-Public Use
  Company Number: US-BRISTOL-MYERS SQUIBB COMPANY-21317185

PATIENT
  Age: 70 Year
  Sex: Male

DRUGS (11)
  1. ASPIRIN. [Suspect]
     Active Substance: ASPIRIN
  2. TAMSULOSIN [Concomitant]
     Active Substance: TAMSULOSIN
  3. CARVEDILOL. [Concomitant]
     Active Substance: CARVEDILOL
  4. GEMFIBROZIL. [Concomitant]
     Active Substance: GEMFIBROZIL
  5. PLAVIX [Suspect]
     Active Substance: CLOPIDOGREL BISULFATE
  6. TICAGRELOR [Concomitant]
     Active Substance: TICAGRELOR
  7. COUMADIN [Suspect]
     Active Substance: WARFARIN SODIUM
  8. AMIODARONE [Concomitant]
     Active Substance: AMIODARONE
  9. SIMVASTATIN. [Concomitant]
     Active Substance: SIMVASTATIN
  10. OMEPRAZOLE. [Concomitant]
     Active Substance: OMEPRAZOLE
  11. LISINOPRIL. [Concomitant]
     Active Substance: LISINOPRIL

REACTIONS (2)
  - Upper gastrointestinal haemorrhage [Unknown]
  - Infection [Unknown]
